FAERS Safety Report 6345989-9 (Version None)
Quarter: 2009Q3

REPORT INFORMATION
  Report Type: 
  Country: None (occurrence: None)
  Receive Date: 20090909
  Receipt Date: 20090903
  Transmission Date: 20100115
  Serious: Yes (Hospitalization)
  Sender: FDA-Public Use
  Company Number: FR-JNJFOC-20090902058

PATIENT
  Sex: Male

DRUGS (4)
  1. HALDOL [Suspect]
     Route: 048
  2. HALDOL [Suspect]
     Indication: DRUG USE FOR UNKNOWN INDICATION
     Route: 048
  3. TERCIAN [Suspect]
     Indication: DRUG USE FOR UNKNOWN INDICATION
     Route: 048
     Dates: start: 20090730, end: 20090818
  4. LEPTICUR [Concomitant]
     Route: 065

REACTIONS (2)
  - CONGESTIVE CARDIOMYOPATHY [None]
  - PSYCHOTIC DISORDER [None]
